FAERS Safety Report 24970052 (Version 1)
Quarter: 2025Q1

REPORT INFORMATION
  Report Type: Spontaneous
  Country: US (occurrence: None)
  Receive Date: 20250213
  Receipt Date: 20250213
  Transmission Date: 20250408
  Serious: Yes (Other)
  Sender: FDA-CTU
  Company Number: None

PATIENT
  Age: 74 Year
  Sex: Female
  Weight: 72 kg

DRUGS (14)
  1. LAXATIVE (BISACODYL) [Suspect]
     Active Substance: BISACODYL
     Indication: Bowel preparation
     Route: 048
     Dates: start: 20250211, end: 20250211
  2. AMLODIPINE [Concomitant]
     Active Substance: AMLODIPINE BESYLATE
  3. FLECAINIDE [Concomitant]
     Active Substance: FLECAINIDE
  4. FLUTICASONE PROPIONATE [Concomitant]
     Active Substance: FLUTICASONE PROPIONATE
  5. AZELASTINE [Concomitant]
     Active Substance: AZELASTINE
  6. BREO ELLIPTA [Concomitant]
     Active Substance: FLUTICASONE FUROATE\VILANTEROL TRIFENATATE
  7. MONTELUKAST [Concomitant]
     Active Substance: MONTELUKAST
  8. CETIRIZINE [Concomitant]
     Active Substance: CETIRIZINE HYDROCHLORIDE
  9. Vitafusion Multivites multivitamin [Concomitant]
  10. Vitafusion Calcium + D3 [Concomitant]
  11. Member^s Mark Super B-complex [Concomitant]
  12. BIOTIN [Concomitant]
     Active Substance: BIOTIN
  13. Member^s Mark Advanced Eye Health [Concomitant]
  14. Fiber Therapy Calcium Polycarbophil [Concomitant]

REACTIONS (12)
  - Nausea [None]
  - Vomiting [None]
  - Retching [None]
  - Gastrointestinal pain [None]
  - Diarrhoea [None]
  - Heart rate increased [None]
  - Palpitations [None]
  - Hyperhidrosis [None]
  - Tremor [None]
  - Chills [None]
  - Dizziness [None]
  - Gastrointestinal pain [None]

NARRATIVE: CASE EVENT DATE: 20250211
